FAERS Safety Report 6236288-4 (Version None)
Quarter: 2009Q2

REPORT INFORMATION
  Report Type: 
  Country: None (occurrence: None)
  Receive Date: 20090619
  Receipt Date: 20090608
  Transmission Date: 20091009
  Serious: Yes (Death, Hospitalization)
  Sender: FDA-Public Use
  Company Number: IE-PFIZER INC-2008090376

PATIENT
  Age: 71 Year

DRUGS (2)
  1. LIPITOR [Suspect]
     Indication: CORONARY ARTERY BYPASS
     Route: 048
     Dates: end: 20080701
  2. FUSIDIC ACID [Suspect]
     Indication: OSTEOMYELITIS

REACTIONS (3)
  - CORONARY ARTERY BYPASS [None]
  - DRUG INTERACTION [None]
  - RHABDOMYOLYSIS [None]
